FAERS Safety Report 5505604-0 (Version None)
Quarter: 2007Q4

REPORT INFORMATION
  Report Type: 
  Country: None (occurrence: None)
  Receive Date: 20071102
  Receipt Date: 20071023
  Transmission Date: 20080405
  Serious: Yes (Other)
  Sender: FDA-Public Use
  Company Number: US-PFIZER INC-2007042163

PATIENT
  Sex: Male
  Weight: 67.6 kg

DRUGS (6)
  1. CHANTIX [Suspect]
  2. WELLBUTRIN XL [Suspect]
     Indication: ANXIETY
  3. NEXIUM [Concomitant]
     Indication: GASTROOESOPHAGEAL REFLUX DISEASE
  4. PLAVIX [Concomitant]
  5. MIDODRINE [Concomitant]
  6. ACETYLSALICYLIC ACID SRT [Concomitant]

REACTIONS (2)
  - AGEUSIA [None]
  - WEIGHT DECREASED [None]
